FAERS Safety Report 14279470 (Version 2)
Quarter: 2018Q1

REPORT INFORMATION
  Report Type: Report from Study
  Country: US (occurrence: US)
  Receive Date: 20171213
  Receipt Date: 20180217
  Transmission Date: 20180508
  Serious: Yes (Other)
  Sender: FDA-Public Use
  Company Number: US-SUN PHARMACEUTICAL INDUSTRIES LTD-2017US-156494

PATIENT
  Age: 29 Year
  Sex: Female

DRUGS (1)
  1. ABSORICA [Suspect]
     Active Substance: ISOTRETINOIN
     Indication: ACNE
     Dosage: 30 MG, BID
     Route: 048
     Dates: start: 201709, end: 20171020

REACTIONS (2)
  - Corneal abrasion [Unknown]
  - Dry eye [Unknown]

NARRATIVE: CASE EVENT DATE: 20170930
